FAERS Safety Report 6347821-6 (Version None)
Quarter: 2009Q3

REPORT INFORMATION
  Report Type: 
  Country: None (occurrence: None)
  Receive Date: 20090910
  Receipt Date: 20090903
  Transmission Date: 20100115
  Serious: Yes (Hospitalization)
  Sender: FDA-Public Use
  Company Number: B0589248A

PATIENT
  Sex: Female
  Weight: 82 kg

DRUGS (5)
  1. TOPOTECAN [Suspect]
     Dosage: 1.42MG CYCLIC
     Route: 042
     Dates: start: 20090805
  2. CARBOPLATIN [Suspect]
     Dosage: 629MG CYCLIC
     Route: 042
     Dates: start: 20090807
  3. BISOPROLOL [Concomitant]
     Indication: HYPERTENSION
     Dosage: 2.5MG PER DAY
     Route: 048
     Dates: start: 20090101
  4. LISINOPRIL [Concomitant]
     Indication: HYPERTENSION
     Dosage: 2.5MG PER DAY
     Route: 048
     Dates: start: 20090101
  5. BUSCOPAN [Concomitant]
     Dosage: 30MG PER DAY
     Route: 048
     Dates: start: 20090812

REACTIONS (3)
  - ANAL HAEMORRHAGE [None]
  - COLITIS [None]
  - DIARRHOEA [None]
